FAERS Safety Report 9991935 (Version 1)
Quarter: 2014Q1

REPORT INFORMATION
  Report Type: Spontaneous
  Country: US (occurrence: US)
  Receive Date: 20140310
  Receipt Date: 20140310
  Transmission Date: 20141002
  Serious: No
  Sender: FDA-Public Use
  Company Number: US-VIIV HEALTHCARE LIMITED-A1059633A

PATIENT
  Sex: Female

DRUGS (4)
  1. TIVICAY [Suspect]
     Indication: HIV INFECTION
     Dosage: 50MG TWICE PER DAY
     Route: 048
     Dates: start: 201307
  2. TIPRANAVIR [Concomitant]
  3. RITONAVIR [Concomitant]
  4. RILPIVIRINE [Concomitant]

REACTIONS (1)
  - Hepatic enzyme increased [Not Recovered/Not Resolved]
